FAERS Safety Report 21034465 (Version 1)
Quarter: 2022Q2

REPORT INFORMATION
  Report Type: Spontaneous
  Country: US (occurrence: None)
  Receive Date: 20220630
  Receipt Date: 20220630
  Transmission Date: 20220721
  Serious: Yes (Life-Threatening)
  Sender: FDA-Public Use
  Company Number: None

PATIENT
  Age: 66 Year
  Sex: Male
  Weight: 95.25 kg

DRUGS (1)
  1. LUMASON [Suspect]
     Active Substance: SULFUR HEXAFLUORIDE
     Indication: Echocardiogram
     Dosage: FREQUENCY : ONCE.;?
     Route: 040
     Dates: start: 20220630, end: 20220630

REACTIONS (8)
  - Paraesthesia [None]
  - Feeling abnormal [None]
  - Tremor [None]
  - Unresponsive to stimuli [None]
  - Pulse absent [None]
  - Atrioventricular block [None]
  - Acute myocardial infarction [None]
  - Acute myocardial infarction [None]

NARRATIVE: CASE EVENT DATE: 20220630
